FAERS Safety Report 13721721 (Version 3)
Quarter: 2018Q4

REPORT INFORMATION
  Report Type: Spontaneous
  Country: US (occurrence: US)
  Receive Date: 20170706
  Receipt Date: 20181011
  Transmission Date: 20190204
  Serious: Yes (Other)
  Sender: FDA-Public Use
  Company Number: US-PFIZER INC-2016536338

PATIENT
  Age: 58 Year
  Sex: Female

DRUGS (18)
  1. AMITRIPTYLINE HCL [Concomitant]
     Active Substance: AMITRIPTYLINE
     Dosage: 150 MG, 1X/DAY (AT BEDTIME)
     Route: 048
  2. METOPROLOL TARTRATE. [Concomitant]
     Active Substance: METOPROLOL TARTRATE
     Dosage: 50 MG, 2X/DAY
     Route: 048
  3. LYRICA [Suspect]
     Active Substance: PREGABALIN
     Dosage: 75 MG, 2X/DAY
  4. ACETAMINOPHEN W/HYDROCODONE [Concomitant]
     Active Substance: ACETAMINOPHEN\HYDROCODONE
     Dosage: UNK UNK, AS NEEDED (HYDROCODONE10 MG-ACETAMINOPHEN325MG )
     Route: 048
  5. DIAZEPAM. [Concomitant]
     Active Substance: DIAZEPAM
     Dosage: 5 MG, AS NEEDED (THREE TIMES A DAY)
     Route: 048
  6. LYRICA [Suspect]
     Active Substance: PREGABALIN
     Dosage: 50 MG, 3X/DAY
  7. FLEXERIL [Concomitant]
     Active Substance: CYCLOBENZAPRINE HYDROCHLORIDE
     Dosage: 10 MG, AS NEEDED
     Route: 048
  8. HUMULIN N [Concomitant]
     Active Substance: INSULIN HUMAN
     Dosage: 100 IU/ML, AS NEEDED
     Route: 058
  9. IBUPROFEN. [Concomitant]
     Active Substance: IBUPROFEN
     Indication: PAIN
     Dosage: 800 MG, AS NEEDED
     Route: 048
  10. PREGABALIN. [Concomitant]
     Active Substance: PREGABALIN
     Dosage: 75 MG, 2X/DAY
     Route: 048
  11. PROAIR HFA [Concomitant]
     Active Substance: ALBUTEROL SULFATE
     Dosage: UNK UNK, AS NEEDED (108 (90 BASE) MCG/ACT 2 PUFFS AS NEEDED INHALATION EVERY 4 HRS)
  12. HUMULIN R [Concomitant]
     Active Substance: INSULIN HUMAN
     Dosage: 100 IU/ML, 2X/DAY
     Route: 058
  13. INSULIN LISPRO [Concomitant]
     Active Substance: INSULIN LISPRO
     Dosage: 100 IU/ML, AS NEEDED
     Route: 058
  14. LASIX [Concomitant]
     Active Substance: FUROSEMIDE
     Dosage: 40 MG, 3X/DAY
  15. LOSARTAN POTASSIUM. [Concomitant]
     Active Substance: LOSARTAN POTASSIUM
     Dosage: 100 MG, 1X/DAY
     Route: 048
  16. NORCO [Concomitant]
     Active Substance: ACETAMINOPHEN\HYDROCODONE BITARTRATE
     Indication: PAIN
     Dosage: UNK UNK, AS NEEDED (HYDROCODONE BITARTRATE 10 MG, PARACETAMOL 325 MG)
  17. ASPIRIN 81 [Concomitant]
     Active Substance: ASPIRIN
     Dosage: 81 MG, 1X/DAY
     Route: 048
  18. METFORMIN HCL [Concomitant]
     Active Substance: METFORMIN HYDROCHLORIDE
     Indication: DIABETES MELLITUS
     Dosage: 500 MG, 2X/DAY
     Route: 048

REACTIONS (6)
  - Back pain [Unknown]
  - Pain in extremity [Unknown]
  - Joint swelling [Unknown]
  - Gait disturbance [Unknown]
  - Arthralgia [Unknown]
  - Headache [Unknown]
